FAERS Safety Report 9269879 (Version 2)
Quarter: 2013Q2

REPORT INFORMATION
  Report Type: Spontaneous
  Country: US (occurrence: US)
  Receive Date: 20130503
  Receipt Date: 20130514
  Transmission Date: 20140414
  Serious: Yes (Death, Hospitalization)
  Sender: FDA-Public Use
  Company Number: US-GILEAD-2013-0074493

PATIENT
  Age: 58 Year
  Sex: Female

DRUGS (13)
  1. LETAIRIS [Suspect]
     Indication: PULMONARY HYPERTENSION
     Dosage: 10 MG, QD
     Route: 048
     Dates: start: 201104, end: 201304
  2. LETAIRIS [Suspect]
     Indication: INTERSTITIAL LUNG DISEASE
  3. REVATIO [Concomitant]
  4. METOPROLOL [Concomitant]
  5. METOLAZONE [Concomitant]
  6. ZESTRIL [Concomitant]
  7. K-TAB [Concomitant]
  8. LIPITOR [Concomitant]
  9. LASIX                              /00032601/ [Concomitant]
  10. DIAMOX                             /00016901/ [Concomitant]
  11. NOVOLIN [Concomitant]
  12. HYDRALAZINE [Concomitant]
  13. ATIVAN [Concomitant]

REACTIONS (7)
  - Septic shock [Fatal]
  - Pulmonary hypertension [Unknown]
  - Interstitial lung disease [Unknown]
  - Cardiac failure [Unknown]
  - Sepsis [Unknown]
  - Respiratory distress [Unknown]
  - Dyspnoea [Unknown]
